FAERS Safety Report 10673417 (Version 1)
Quarter: 2014Q4

REPORT INFORMATION
  Report Type: Spontaneous
  Country: US (occurrence: US)
  Receive Date: 20141224
  Receipt Date: 20141224
  Transmission Date: 20150529
  Serious: Yes (Hospitalization)
  Sender: FDA-Public Use
  Company Number: US-BIOGENIDEC-2014BI133919

PATIENT
  Age: 28 Year
  Sex: Male

DRUGS (1)
  1. TECFIDERA [Suspect]
     Active Substance: DIMETHYL FUMARATE
     Indication: MULTIPLE SCLEROSIS
     Dates: start: 201401

REACTIONS (8)
  - Dehydration [Recovered/Resolved]
  - Fatigue [Recovered/Resolved]
  - Bipolar disorder [Unknown]
  - Urinary tract infection [Recovered/Resolved]
  - Delusion [Recovered/Resolved]
  - Gastric disorder [Recovered/Resolved]
  - Acute psychosis [Recovered/Resolved]
  - Depressed mood [Not Recovered/Not Resolved]

NARRATIVE: CASE EVENT DATE: 2014
